FAERS Safety Report 9866930 (Version 1)
Quarter: 2014Q1

REPORT INFORMATION
  Report Type: Spontaneous
  Country: US (occurrence: US)
  Receive Date: 20140204
  Receipt Date: 20140204
  Transmission Date: 20141002
  Serious: No
  Sender: FDA-Public Use
  Company Number: US-PFIZER INC-2014027619

PATIENT
  Age: 78 Year
  Sex: Male
  Weight: 90.7 kg

DRUGS (2)
  1. LATANOPROST [Suspect]
     Indication: INTRAOCULAR PRESSURE INCREASED
     Dosage: 1 GTT, DAILY
     Route: 047
  2. HYTRIN [Concomitant]
     Indication: PROSTATIC DISORDER
     Dosage: 5 MG, DAILY

REACTIONS (1)
  - Eye irritation [Unknown]
